FAERS Safety Report 11004816 (Version 8)
Quarter: 2015Q4

REPORT INFORMATION
  Report Type: Spontaneous
  Country: US (occurrence: US)
  Receive Date: 20150409
  Receipt Date: 20151218
  Transmission Date: 20160304
  Serious: Yes (Hospitalization)
  Sender: FDA-Public Use
  Company Number: US-PFIZER INC-2015119053

PATIENT
  Age: 69 Year
  Sex: Male
  Weight: 83 kg

DRUGS (8)
  1. SUTENT [Suspect]
     Active Substance: SUNITINIB MALATE
     Dosage: 37.5 MG CYCLIC (DAILY,28 DAYS ON /14 DAYS OFF)
     Dates: start: 20150318
  2. PRAVASTATIN [Concomitant]
     Active Substance: PRAVASTATIN\PRAVASTATIN SODIUM
     Dosage: UNK
  3. METOPROLOL [Concomitant]
     Active Substance: METOPROLOL
     Dosage: UNK
  4. LISINOPRIL. [Concomitant]
     Active Substance: LISINOPRIL
     Dosage: UNK
  5. GLIPIZIDE. [Concomitant]
     Active Substance: GLIPIZIDE
     Dosage: UNK
  6. METFORMIN [Concomitant]
     Active Substance: METFORMIN HYDROCHLORIDE
     Dosage: UNK
  7. SUTENT [Suspect]
     Active Substance: SUNITINIB MALATE
     Indication: RENAL CANCER METASTATIC
     Dosage: 50 MG CYCLIC
     Dates: start: 20150201
  8. MAGIC MOUTHWASH [Concomitant]
     Active Substance: DIPHENHYDRAMINE HYDROCHLORIDE\LIDOCAINE HYDROCHLORIDE\NYSTATIN
     Dosage: UNK
     Dates: start: 20150217

REACTIONS (15)
  - Glossodynia [Not Recovered/Not Resolved]
  - Rash [Recovered/Resolved]
  - Fatigue [Not Recovered/Not Resolved]
  - Hyperaesthesia [Unknown]
  - Skin reaction [Not Recovered/Not Resolved]
  - Skin hypertrophy [Not Recovered/Not Resolved]
  - Oral pain [Not Recovered/Not Resolved]
  - Blood glucose increased [Recovering/Resolving]
  - White blood cell count decreased [Unknown]
  - Musculoskeletal discomfort [Recovering/Resolving]
  - Blister [Not Recovered/Not Resolved]
  - Dry skin [Not Recovered/Not Resolved]
  - Dysgeusia [Not Recovered/Not Resolved]
  - Skin exfoliation [Not Recovered/Not Resolved]
  - Stomatitis [Unknown]
